FAERS Safety Report 12667195 (Version 2)
Quarter: 2016Q3

REPORT INFORMATION
  Report Type: Spontaneous
  Country: US (occurrence: US)
  Receive Date: 20160819
  Receipt Date: 20160826
  Transmission Date: 20161109
  Serious: Yes (Hospitalization)
  Sender: FDA-Public Use
  Company Number: US-SA-2016SA150248

PATIENT
  Age: 83 Year
  Sex: Female

DRUGS (2)
  1. SEVELAMER CARBONATE. [Suspect]
     Active Substance: SEVELAMER CARBONATE
     Indication: HYPERPHOSPHATAEMIA
     Route: 065
  2. SEVELAMER CARBONATE. [Suspect]
     Active Substance: SEVELAMER CARBONATE
     Indication: END STAGE RENAL DISEASE
     Route: 065

REACTIONS (9)
  - Serositis [Unknown]
  - Gastric ulcer [Unknown]
  - Large intestine perforation [Unknown]
  - Hypotension [Unknown]
  - Abdominal distension [Unknown]
  - Unresponsive to stimuli [Unknown]
  - Colitis ischaemic [Unknown]
  - Gastrointestinal necrosis [Unknown]
  - Pyrexia [Unknown]
